FAERS Safety Report 20710825 (Version 1)
Quarter: 2022Q2

REPORT INFORMATION
  Report Type: Report from Study
  Country: US (occurrence: US)
  Receive Date: 20220414
  Receipt Date: 20220414
  Transmission Date: 20220721
  Serious: Yes (Hospitalization)
  Sender: FDA-Public Use
  Company Number: US-Taiho Oncology Inc-EU-2021-03361

PATIENT
  Age: 73 Year
  Sex: Female
  Weight: 42.4 kg

DRUGS (8)
  1. TIPIRACIL HYDROCHLORIDE\TRIFLURIDINE [Suspect]
     Active Substance: TIPIRACIL HYDROCHLORIDE\TRIFLURIDINE
     Indication: Colon cancer
     Dosage: CYCLE 1
     Route: 048
     Dates: start: 20210714
  2. TIPIRACIL HYDROCHLORIDE\TRIFLURIDINE [Suspect]
     Active Substance: TIPIRACIL HYDROCHLORIDE\TRIFLURIDINE
     Dosage: CYCLE UNKNOWN
     Route: 048
     Dates: start: 20210922, end: 20211006
  3. IRINOTECAN HYDROCHLORIDE [Suspect]
     Active Substance: IRINOTECAN HYDROCHLORIDE
     Indication: Colon cancer
     Dosage: CYCLE 1, FREQUENCY UNKNOWN
     Route: 042
     Dates: start: 20210714
  4. IRINOTECAN HYDROCHLORIDE [Suspect]
     Active Substance: IRINOTECAN HYDROCHLORIDE
     Route: 042
     Dates: start: 20210922, end: 20211006
  5. AVASTIN [Concomitant]
     Active Substance: BEVACIZUMAB
     Dates: start: 20210714
  6. AVASTIN [Concomitant]
     Active Substance: BEVACIZUMAB
     Dates: start: 20210811
  7. AVASTIN [Concomitant]
     Active Substance: BEVACIZUMAB
     Dates: start: 20210922
  8. AVASTIN [Concomitant]
     Active Substance: BEVACIZUMAB
     Dates: start: 20211006

REACTIONS (3)
  - Septic shock [Unknown]
  - Sepsis [Recovering/Resolving]
  - Urinary tract infection [Unknown]

NARRATIVE: CASE EVENT DATE: 20211019
